FAERS Safety Report 5254885-X (Version None)
Quarter: 2007Q1

REPORT INFORMATION
  Report Type: 
  Country: None (occurrence: None)
  Receive Date: 20070305
  Receipt Date: 20070220
  Transmission Date: 20070707
  Serious: Yes (Other)
  Sender: FDA-Public Use
  Company Number: PHNU2006DE03169

PATIENT
  Sex: Female
  Weight: 72 kg

DRUGS (2)
  1. STEROIDS NOS [Suspect]
     Route: 065
  2. AREDIA [Suspect]
     Indication: OSTEOPOROSIS
     Dosage: 30 MG, Q3MO
     Route: 042

REACTIONS (5)
  - CONDITION AGGRAVATED [None]
  - OSTEOPOROSIS [None]
  - OSTEOPOROTIC FRACTURE [None]
  - SPINAL DISORDER [None]
  - X-RAY ABNORMAL [None]
